FAERS Safety Report 15485901 (Version 3)
Quarter: 2019Q1

REPORT INFORMATION
  Report Type: Report from Study
  Country: JP (occurrence: JP)
  Receive Date: 20181011
  Receipt Date: 20190118
  Transmission Date: 20190417
  Serious: Yes (Hospitalization, Other)
  Sender: FDA-Public Use
  Company Number: JP-AMGEN INC.-JPNCT2018004697

PATIENT
  Age: 54 Year
  Sex: Female
  Weight: 63 kg

DRUGS (19)
  1. REBAMIPIDE [Concomitant]
     Active Substance: REBAMIPIDE
     Dosage: 100 MG, UNK
     Dates: start: 2008
  2. ZETIA [Concomitant]
     Active Substance: EZETIMIBE
     Dosage: 10 MG, UNK
     Dates: start: 201711
  3. MAXALT [Concomitant]
     Active Substance: RIZATRIPTAN BENZOATE
     Dosage: 10 MG, UNK
     Dates: start: 20160322
  4. PITAVASTATIN CA [Concomitant]
     Active Substance: PITAVASTATIN CALCIUM
     Dosage: 2 MG, UNK
     Dates: start: 20160507
  5. THYRADIN S [Concomitant]
     Active Substance: LEVOTHYROXINE SODIUM
     Dosage: 100 MUG, UNK
     Dates: start: 20101221
  6. CALFINA [Concomitant]
     Active Substance: ALFACALCIDOL
     Dosage: 0.5 MUG, UNK
     Dates: start: 20101221
  7. PLACEBO [Suspect]
     Active Substance: UNSPECIFIED INGREDIENT
     Indication: MIGRAINE
     Dosage: UNK
     Route: 058
     Dates: start: 20160322, end: 20160809
  8. FAMOTIDINE. [Concomitant]
     Active Substance: FAMOTIDINE
     Dosage: 10 MG, UNK
     Dates: start: 20170809, end: 20171003
  9. PREFILLED SYRINGE [Suspect]
     Active Substance: UNSPECIFIED INGREDIENT
     Indication: MIGRAINE
     Dosage: UNK
     Route: 058
     Dates: start: 20160906, end: 20171128
  10. LANSOPRAZOLE. [Concomitant]
     Active Substance: LANSOPRAZOLE
     Dosage: 15 MG, UNK
     Dates: start: 20171003
  11. CARDENALIN [Concomitant]
     Active Substance: DOXAZOSIN MESYLATE
     Dosage: 2 TO 4 MG, QD
     Dates: start: 20171003
  12. SELENICA R [Concomitant]
     Active Substance: VALPROATE SODIUM
     Dosage: 400 MG, UNK
     Dates: start: 20120806
  13. NARON [Concomitant]
     Dosage: 1.6 G, UNK
     Dates: start: 2011
  14. AMG 334 [Suspect]
     Active Substance: ERENUMAB
     Indication: MIGRAINE
     Dosage: 1 ML, UNK
     Route: 058
     Dates: start: 20160906, end: 20171128
  15. SUMATRIPTAN. [Concomitant]
     Active Substance: SUMATRIPTAN
     Dosage: 50 MG, UNK
     Dates: start: 2013
  16. LOXOPROFEN SODIUM [Concomitant]
     Active Substance: LOXOPROFEN SODIUM
     Dosage: 50 TO 60 MG, UNK
     Dates: start: 20160616
  17. DEXALTIN [Concomitant]
     Active Substance: DEXAMETHASONE
     Dosage: 1 UNK, UNK
     Route: 048
     Dates: start: 20160106
  18. IMIGRAN [Concomitant]
     Active Substance: SUMATRIPTAN SUCCINATE
     Dosage: 20 TO 50 MG, UNK
     Dates: start: 20060830
  19. AMLODIPINE [Concomitant]
     Active Substance: AMLODIPINE BESYLATE
     Dosage: 2.5 MG, UNK
     Dates: start: 20170822, end: 20171003

REACTIONS (1)
  - Breast cancer [Not Recovered/Not Resolved]

NARRATIVE: CASE EVENT DATE: 20171221
